FAERS Safety Report 11397188 (Version 3)
Quarter: 2016Q1

REPORT INFORMATION
  Report Type: Spontaneous
  Country: US (occurrence: US)
  Receive Date: 20150819
  Receipt Date: 20160105
  Transmission Date: 20160525
  Serious: Yes (Hospitalization, Congenital Anomaly, Other)
  Sender: FDA-Public Use
  Company Number: US-ELI_LILLY_AND_COMPANY-US201508004839

PATIENT
  Age: 0 Day

DRUGS (1)
  1. PROZAC [Suspect]
     Active Substance: FLUOXETINE HYDROCHLORIDE
     Indication: PRODUCT USED FOR UNKNOWN INDICATION
     Dosage: UNK
     Route: 064
     Dates: start: 1999, end: 2000

REACTIONS (14)
  - Respiratory disorder [Unknown]
  - Gastrooesophageal reflux disease [Unknown]
  - Immature respiratory system [Unknown]
  - Seizure [Unknown]
  - Erythema [Unknown]
  - Cardiac output decreased [Unknown]
  - Failure to thrive [Unknown]
  - Exposure during breast feeding [Unknown]
  - Congenital cardiovascular anomaly [Unknown]
  - Pulmonary sequestration [Unknown]
  - Foetal exposure during pregnancy [Recovered/Resolved]
  - Cardiac failure congestive [Unknown]
  - Cardiac murmur [Unknown]
  - Cyanosis [Unknown]

NARRATIVE: CASE EVENT DATE: 20000711
